FAERS Safety Report 4322697-7 (Version None)
Quarter: 2004Q1

REPORT INFORMATION
  Report Type: 
  Country: None (occurrence: None)
  Receive Date: 20040318
  Receipt Date: 20030507
  Transmission Date: 20041129
  Serious: Yes (Hospitalization)
  Sender: FDA-Public Use
  Company Number: MK200305-0096-1

PATIENT
  Age: 65 Year
  Sex: Male

DRUGS (1)
  1. OPTIRAY 320 [Suspect]
     Dosage: 120CC
     Dates: start: 20030507, end: 20030507

REACTIONS (2)
  - EXTRAVASATION [None]
  - INJECTION SITE SWELLING [None]
